FAERS Safety Report 17540778 (Version 2)
Quarter: 2020Q1

REPORT INFORMATION
  Report Type: Spontaneous
  Country: US (occurrence: US)
  Receive Date: 20200313
  Receipt Date: 20200325
  Transmission Date: 20200409
  Serious: Yes (Hospitalization, Other)
  Sender: FDA-Public Use
  Company Number: US-PFIZER INC-2020108714

PATIENT
  Age: 71 Year
  Sex: Male

DRUGS (1)
  1. XANAX [Suspect]
     Active Substance: ALPRAZOLAM
     Indication: ANXIETY
     Dosage: UNK

REACTIONS (17)
  - Angina pectoris [Unknown]
  - Pain in extremity [Unknown]
  - Suicidal ideation [Unknown]
  - Rotator cuff syndrome [Unknown]
  - Confusional state [Unknown]
  - Fall [Unknown]
  - Cold sweat [Unknown]
  - Musculoskeletal pain [Unknown]
  - Neoplasm malignant [Unknown]
  - Blindness [Unknown]
  - Hypoaesthesia [Unknown]
  - Neck pain [Unknown]
  - Gait disturbance [Unknown]
  - Renal disorder [Unknown]
  - Haemorrhage [Unknown]
  - Spinal fracture [Unknown]
  - Insomnia [Unknown]
